FAERS Safety Report 5302650-7 (Version None)
Quarter: 2007Q2

REPORT INFORMATION
  Report Type: 
  Country: None (occurrence: None)
  Receive Date: 20070419
  Receipt Date: 20070410
  Transmission Date: 20071010
  Serious: Yes (Hospitalization, Other)
  Sender: FDA-Public Use
  Company Number: US-PFIZER INC-2006125175

PATIENT
  Sex: Male

DRUGS (2)
  1. BEXTRA [Suspect]
     Indication: ARTHRITIS
     Route: 048
     Dates: start: 20041008, end: 20050213
  2. VIOXX [Suspect]
     Route: 048
     Dates: start: 20030921, end: 20040901

REACTIONS (1)
  - CEREBROVASCULAR ACCIDENT [None]
